FAERS Safety Report 7362308-X (Version None)
Quarter: 2011Q1

REPORT INFORMATION
  Report Type: 
  Country: None (occurrence: None)
  Receive Date: 20110318
  Receipt Date: 20110309
  Transmission Date: 20110831
  Serious: Yes (Hospitalization)
  Sender: FDA-Public Use
  Company Number: JP-CTI_01330_2011

PATIENT
  Age: 47 Year
  Sex: Female

DRUGS (6)
  1. METENOLONE ACETATE [Concomitant]
     Indication: PRODUCT USED FOR UNKNOWN INDICATION
     Dates: start: 20110112, end: 20110228
  2. MEIACT MS TABLET [Suspect]
     Indication: C-REACTIVE PROTEIN INCREASED
     Route: 048
     Dates: start: 20110207, end: 20110214
  3. MAGNESIUM OXIDE [Concomitant]
     Indication: PRODUCT USED FOR UNKNOWN INDICATION
     Dates: start: 20101216, end: 20110228
  4. MEIACT MS TABLET [Suspect]
     Indication: PYREXIA
     Route: 048
     Dates: start: 20110207, end: 20110214
  5. BROTIZOLAM [Concomitant]
     Indication: PRODUCT USED FOR UNKNOWN INDICATION
     Route: 048
     Dates: start: 20101216, end: 20110228
  6. PHENYTOIN [Concomitant]
     Indication: PRODUCT USED FOR UNKNOWN INDICATION
     Dates: start: 20110202, end: 20110212

REACTIONS (3)
  - FEELING JITTERY [None]
  - CARNITINE DECREASED [None]
  - GRAND MAL CONVULSION [None]
